FAERS Safety Report 9972369 (Version 2)
Quarter: 2014Q1

REPORT INFORMATION
  Report Type: Spontaneous
  Country: CL (occurrence: None)
  Receive Date: 20140304
  Receipt Date: 20140311
  Transmission Date: 20141002
  Serious: Yes (Death)
  Sender: FDA-Public Use
  Company Number: 2014P1001826

PATIENT
  Age: 68 Year
  Sex: Male
  Weight: 80.51 kg

DRUGS (12)
  1. CEFTAZIDIME [Suspect]
     Indication: PNEUMONIA
     Route: 042
     Dates: start: 20120314
  2. BLINDED TRIAL MEDICATION [Suspect]
     Indication: ACUTE CORONARY SYNDROME
     Route: 048
     Dates: start: 20110216, end: 20120221
  3. ENALAPRIL [Suspect]
     Indication: CARDIAC FAILURE
     Route: 048
     Dates: start: 20120223, end: 20120226
  4. CEFTRIAXONE [Suspect]
     Indication: PNEUMONIA
     Route: 042
     Dates: start: 20130222, end: 20130223
  5. CLINDAMYCIN [Suspect]
     Indication: PNEUMONIA
     Route: 042
     Dates: start: 20120222
  6. METRONIDAZOLE [Suspect]
     Indication: PNEUMONIA
     Dates: start: 20120221
  7. PHENYTOIN [Concomitant]
  8. ATORVASTATIN [Concomitant]
  9. CALCIUM [Concomitant]
  10. CARVEDILOL [Concomitant]
  11. ASPIRIN [Concomitant]
  12. CLOPIDOGREL [Concomitant]

REACTIONS (12)
  - Cardiogenic shock [None]
  - Pleural effusion [None]
  - Pneumonia [None]
  - Cholelithiasis [None]
  - Cardiac failure [None]
  - Ischaemic stroke [None]
  - Ventricular fibrillation [None]
  - Acute myocardial infarction [None]
  - Renal failure acute [None]
  - Coronary artery disease [None]
  - Coronary artery occlusion [None]
  - Acute myocardial infarction [None]
